FAERS Safety Report 8796092 (Version 2)
Quarter: 2012Q4

REPORT INFORMATION
  Report Type: 
  Country: US (occurrence: US)
  Receive Date: 20120920
  Receipt Date: 20121116
  Transmission Date: 20130627
  Serious: Yes (Hospitalization)
  Sender: FDA-Public Use
  Company Number: US-NOVOPROD-359606

PATIENT
  Sex: Female

DRUGS (2)
  1. LEVEMIR FLEXPEN [Suspect]
     Indication: DIABETES MELLITUS
     Dosage: 30 U at night
     Route: 058
     Dates: start: 201207
  2. LEVEMIR FLEXPEN [Suspect]
     Dosage: 15 U at night
     Route: 058

REACTIONS (1)
  - Coma [Recovered/Resolved]
